FAERS Safety Report 6271279-9 (Version None)
Quarter: 2009Q3

REPORT INFORMATION
  Report Type: 
  Country: None (occurrence: None)
  Receive Date: 20090716
  Receipt Date: 20090716
  Transmission Date: 20100115
  Serious: Yes (Other)
  Sender: FDA-Public Use
  Company Number: None

PATIENT
  Sex: Female
  Weight: 86.1834 kg

DRUGS (2)
  1. REGLAN [Suspect]
     Indication: DYSPEPSIA
     Dosage: 10 MG 1 X DAY
     Dates: start: 20000301, end: 20061101
  2. REGLAN [Suspect]
     Indication: GASTROOESOPHAGEAL REFLUX DISEASE
     Dosage: 10 MG 1 X DAY
     Dates: start: 20000301, end: 20061101

REACTIONS (1)
  - DYSKINESIA [None]
